FAERS Safety Report 19382451 (Version 1)
Quarter: 2021Q2

REPORT INFORMATION
  Report Type: Report from Study
  Country: BR (occurrence: BR)
  Receive Date: 20210607
  Receipt Date: 20210607
  Transmission Date: 20210717
  Serious: Yes (Other)
  Sender: FDA-Public Use
  Company Number: BR-BIOGEN-2018BI00537892

PATIENT
  Sex: Female

DRUGS (3)
  1. TECFIDERA [Suspect]
     Active Substance: DIMETHYL FUMARATE
     Indication: MULTIPLE SCLEROSIS
     Route: 050
     Dates: start: 201501, end: 201805
  2. TECFIDERA [Suspect]
     Active Substance: DIMETHYL FUMARATE
     Route: 050
     Dates: start: 201506, end: 201711
  3. TECFIDERA [Suspect]
     Active Substance: DIMETHYL FUMARATE
     Route: 050
     Dates: start: 201505, end: 201711

REACTIONS (13)
  - Stress [Recovered/Resolved]
  - Flushing [Recovered/Resolved]
  - Haematemesis [Unknown]
  - Fatigue [Recovered/Resolved]
  - Depression [Unknown]
  - Hypersensitivity [Recovered/Resolved]
  - Drug ineffective [Recovered/Resolved]
  - Disease progression [Unknown]
  - Vomiting [Recovered/Resolved]
  - Multiple sclerosis relapse [Recovered/Resolved]
  - Optic nerve disorder [Unknown]
  - Nausea [Recovered/Resolved]
  - Abdominal pain upper [Unknown]

NARRATIVE: CASE EVENT DATE: 2016
